FAERS Safety Report 20006719 (Version 3)
Quarter: 2022Q1

REPORT INFORMATION
  Report Type: Spontaneous
  Country: DE (occurrence: DE)
  Receive Date: 20211028
  Receipt Date: 20220201
  Transmission Date: 20220423
  Serious: Yes (Hospitalization, Other)
  Sender: FDA-Public Use
  Company Number: DE-ACCORD-243934

PATIENT
  Age: 64 Year
  Sex: Female

DRUGS (3)
  1. MYCOPHENOLATE MOFETIL [Suspect]
     Active Substance: MYCOPHENOLATE MOFETIL
     Indication: Immunosuppression
     Dates: start: 202003
  2. TACROLIMUS [Suspect]
     Active Substance: TACROLIMUS
     Indication: Immunosuppression
     Dates: start: 202003
  3. PREDNISOLONE [Suspect]
     Active Substance: PREDNISOLONE
     Indication: Immunosuppression
     Dates: start: 202003

REACTIONS (12)
  - Condition aggravated [Recovered/Resolved]
  - Anuria [Recovered/Resolved]
  - Nausea [Unknown]
  - Decreased appetite [Unknown]
  - Diarrhoea [Unknown]
  - Renal impairment [Recovered/Resolved]
  - Depression [Recovered/Resolved]
  - Delirium [Recovering/Resolving]
  - Hallucination, visual [Recovering/Resolving]
  - Disorientation [Recovering/Resolving]
  - Agitation [Recovering/Resolving]
  - Delusion [Recovering/Resolving]

NARRATIVE: CASE EVENT DATE: 20200101
